FAERS Safety Report 13583130 (Version 2)
Quarter: 2020Q2

REPORT INFORMATION
  Report Type: Spontaneous
  Country: US (occurrence: US)
  Receive Date: 20170525
  Receipt Date: 20200529
  Transmission Date: 20200713
  Serious: Yes (Hospitalization, Other)
  Sender: FDA-Public Use
  Company Number: US-BRISTOL-MYERS SQUIBB COMPANY-BMS-2017-044958

PATIENT
  Sex: Female

DRUGS (1)
  1. SPRYCEL [Suspect]
     Active Substance: DASATINIB
     Indication: RHEUMATOID ARTHRITIS
     Dosage: 880 MG, Q4WK
     Route: 042
     Dates: start: 20150831

REACTIONS (3)
  - Off label use [Unknown]
  - Hospitalisation [Unknown]
  - Intentional product use issue [Unknown]
